FAERS Safety Report 9054416 (Version 1)
Quarter: 2013Q1

REPORT INFORMATION
  Report Type: Spontaneous
  Country: US (occurrence: US)
  Receive Date: 20130208
  Receipt Date: 20130208
  Transmission Date: 20140127
  Serious: Yes (Other)
  Sender: FDA-Public Use
  Company Number: US-GLAXOSMITHKLINE-A0963620A

PATIENT
  Sex: Female

DRUGS (2)
  1. PAXIL [Suspect]
     Indication: DEPRESSION
  2. SAVELLA [Suspect]
     Indication: FIBROMYALGIA

REACTIONS (2)
  - Serotonin syndrome [Unknown]
  - Pyrexia [Unknown]
